FAERS Safety Report 7950286-1 (Version None)
Quarter: 2011Q4

REPORT INFORMATION
  Report Type: 
  Country: None (occurrence: None)
  Receive Date: 20111130
  Receipt Date: 20111122
  Transmission Date: 20120403
  Serious: Yes (Hospitalization)
  Sender: FDA-Public Use
  Company Number: DE-CEPHALON-2011005961

PATIENT
  Sex: Male
  Weight: 76 kg

DRUGS (2)
  1. BENDAMUSTINE HCL [Suspect]
     Route: 042
     Dates: start: 20111103
  2. MABTHERA [Suspect]
     Route: 042
     Dates: start: 20111102

REACTIONS (3)
  - DIARRHOEA [None]
  - DISORIENTATION [None]
  - PYREXIA [None]
